FAERS Safety Report 9932327 (Version 1)
Quarter: 2014Q1

REPORT INFORMATION
  Report Type: Spontaneous
  Country: US (occurrence: None)
  Receive Date: 20140227
  Receipt Date: 20140227
  Transmission Date: 20141002
  Serious: Yes (Hospitalization)
  Sender: FDA-Public Use
  Company Number: None

PATIENT
  Age: 52 Year
  Sex: Female
  Weight: 71.67 kg

DRUGS (2)
  1. ALBUTEROL SULFATE [Suspect]
     Indication: PNEUMOTHORAX
     Dosage: 1-VIAL, 4 TIMES DAILY, 7497947
     Dates: start: 20121203, end: 201310
  2. ALBUTEROL SULFATE [Suspect]

REACTIONS (3)
  - Dysphonia [None]
  - Cough [None]
  - Pneumothorax [None]
